FAERS Safety Report 8444528-6 (Version None)
Quarter: 2012Q2

REPORT INFORMATION
  Report Type: 
  Country: None (occurrence: None)
  Receive Date: 20120611
  Receipt Date: 20120528
  Transmission Date: 20120825
  Serious: Yes (Hospitalization, Other)
  Sender: FDA-Public Use
  Company Number: CY-1192234

PATIENT
  Age: 26 Year
  Sex: Female
  Weight: 65 kg

DRUGS (8)
  1. FOLIC ACID [Concomitant]
  2. HEXAMIDINE OPTHALMIC SOLUTION [Suspect]
     Indication: ULCERATIVE KERATITIS
     Dosage: OPTHALMIC
     Route: 047
     Dates: start: 20120517
  3. VIGAMOX 0.5 % OPHTHALMIC SOLUTION  (VIGAMOX) [Suspect]
     Indication: ULCERATIVE KERATITIS
     Dosage: ONE DROP EVERY ONE HOUR FOR THE FIRST 48 HOURS OPTHALMIC, (EVERY THREE HOURS FOR 48 HOURS OPTHALMIC
     Route: 047
     Dates: start: 20120517, end: 20120518
  4. VIGAMOX 0.5 % OPHTHALMIC SOLUTION  (VIGAMOX) [Suspect]
     Indication: ULCERATIVE KERATITIS
     Dosage: ONE DROP EVERY ONE HOUR FOR THE FIRST 48 HOURS OPTHALMIC, (EVERY THREE HOURS FOR 48 HOURS OPTHALMIC
     Route: 047
     Dates: start: 20120520, end: 20120525
  5. VIGAMOX 0.5 % OPHTHALMIC SOLUTION  (VIGAMOX) [Suspect]
     Indication: ULCERATIVE KERATITIS
     Dosage: ONE DROP EVERY ONE HOUR FOR THE FIRST 48 HOURS OPTHALMIC, (EVERY THREE HOURS FOR 48 HOURS OPTHALMIC
     Route: 047
     Dates: start: 20120519, end: 20120520
  6. CALCIUM [Concomitant]
  7. CLORHEXIDINE AND CETRIMIDE AQUEOS [Suspect]
     Indication: ACANTHAMOEBA KERATITIS
     Dosage: 1 GTT 12X/DAY
     Dates: start: 20120517
  8. VITAMIN TAB [Concomitant]

REACTIONS (17)
  - VISUAL ACUITY REDUCED [None]
  - EYE DISCHARGE [None]
  - CAESAREAN SECTION [None]
  - CORNEAL THINNING [None]
  - CORNEAL PERFORATION [None]
  - FLAT ANTERIOR CHAMBER OF EYE [None]
  - OCULAR HYPERAEMIA [None]
  - MATERNAL EXPOSURE DURING PREGNANCY [None]
  - CORNEAL TRANSPLANT [None]
  - CORNEAL EPITHELIUM DEFECT [None]
  - CORNEAL INFILTRATES [None]
  - ANTERIOR CHAMBER DISORDER [None]
  - AQUEOUS HUMOUR LEAKAGE [None]
  - EYELID OEDEMA [None]
  - EYE PAIN [None]
  - ERYTHEMA OF EYELID [None]
  - FOREIGN BODY SENSATION IN EYES [None]
